FAERS Safety Report 24234712 (Version 1)
Quarter: 2024Q3

REPORT INFORMATION
  Report Type: Spontaneous
  Country: US (occurrence: None)
  Receive Date: 20240820
  Receipt Date: 20240820
  Transmission Date: 20241016
  Serious: Yes (Other)
  Sender: Public
  Company Number: None

PATIENT
  Age: 69 Year
  Sex: Male
  Weight: 83.25 kg

DRUGS (4)
  1. ROSUVASTATIN [Suspect]
     Active Substance: ROSUVASTATIN\ROSUVASTATIN CALCIUM
  2. PRAVASTATIN [Concomitant]
     Active Substance: PRAVASTATIN
  3. TESTOSTERONE [Concomitant]
     Active Substance: TESTOSTERONE
  4. ASPIRIN [Concomitant]
     Active Substance: ASPIRIN

REACTIONS (6)
  - Myalgia [None]
  - Arthralgia [None]
  - Peripheral swelling [None]
  - Varicose vein [None]
  - Inappropriate schedule of product administration [None]
  - Gait disturbance [None]

NARRATIVE: CASE EVENT DATE: 20240805
